FAERS Safety Report 8473500-5 (Version None)
Quarter: 2012Q2

REPORT INFORMATION
  Report Type: 
  Country: None (occurrence: None)
  Receive Date: 20120625
  Receipt Date: 20120625
  Transmission Date: 20120825
  Serious: Yes (Hospitalization, Disabling)
  Sender: FDA-Public Use
  Company Number: None

PATIENT
  Sex: Female
  Weight: 75.2971 kg

DRUGS (2)
  1. CIPRO HC [Suspect]
     Indication: EAR DISORDER
     Dosage: 2 DROPS 2/DAY OTIC
     Route: 001
     Dates: start: 20110808, end: 20110815
  2. CIPRO HC [Suspect]
     Indication: PRURITUS
     Dosage: 2 DROPS 2/DAY OTIC
     Route: 001
     Dates: start: 20110808, end: 20110815

REACTIONS (5)
  - TYMPANIC MEMBRANE PERFORATION [None]
  - CONDITION AGGRAVATED [None]
  - EAR INFECTION FUNGAL [None]
  - HEARING IMPAIRED [None]
  - ASPERGILLOSIS [None]
